FAERS Safety Report 9972197 (Version 1)
Quarter: 2014Q1

REPORT INFORMATION
  Report Type: Report from Study
  Country: US (occurrence: US)
  Receive Date: 20140306
  Receipt Date: 20140306
  Transmission Date: 20141002
  Serious: Yes (Other)
  Sender: FDA-Public Use
  Company Number: US-ABBVIE-13P-163-1151404-00

PATIENT
  Age: 58 Year
  Sex: Female
  Weight: 65.83 kg

DRUGS (4)
  1. HUMIRA [Suspect]
     Indication: PSORIASIS
     Route: 058
     Dates: start: 20130604, end: 20130625
  2. HUMIRA [Suspect]
     Route: 058
     Dates: start: 20130820
  3. CELEXA [Concomitant]
     Indication: HOT FLUSH
     Route: 048
  4. IBUPROFEN [Concomitant]
     Indication: PAIN
     Route: 048

REACTIONS (3)
  - Splinter [Recovered/Resolved]
  - Wound [Recovered/Resolved]
  - Pain in extremity [Recovered/Resolved]
